FAERS Safety Report 23029065 (Version 1)
Quarter: 2023Q4

REPORT INFORMATION
  Report Type: Spontaneous
  Country: JP (occurrence: JP)
  Receive Date: 20231004
  Receipt Date: 20231004
  Transmission Date: 20240110
  Serious: Yes (Death, Other)
  Sender: FDA-Public Use
  Company Number: JP-BRISTOL-MYERS SQUIBB COMPANY-2023-140698

PATIENT
  Age: 68 Year
  Sex: Male
  Weight: 86.5 kg

DRUGS (9)
  1. REVLIMID [Suspect]
     Active Substance: LENALIDOMIDE
     Indication: Follicular lymphoma
     Dates: start: 20230328, end: 20230417
  2. REVLIMID [Suspect]
     Active Substance: LENALIDOMIDE
     Dates: start: 20230502, end: 20230522
  3. REVLIMID [Suspect]
     Active Substance: LENALIDOMIDE
     Dates: end: 20230530
  4. RITUXIMAB [Suspect]
     Active Substance: RITUXIMAB
     Indication: Follicular lymphoma
     Dates: start: 20230404
  5. RITUXIMAB [Suspect]
     Active Substance: RITUXIMAB
     Dates: start: 20230411
  6. RITUXIMAB [Suspect]
     Active Substance: RITUXIMAB
     Dates: start: 20230418
  7. RITUXIMAB [Suspect]
     Active Substance: RITUXIMAB
     Dates: start: 20230328
  8. RITUXIMAB [Suspect]
     Active Substance: RITUXIMAB
     Dates: start: 20230502
  9. SULFAMETHOXAZOLE\TRIMETHOPRIM [Concomitant]
     Active Substance: SULFAMETHOXAZOLE\TRIMETHOPRIM
     Indication: Prophylaxis
     Route: 048
     Dates: start: 20230328, end: 20230704

REACTIONS (2)
  - COVID-19 pneumonia [Fatal]
  - Angina pectoris [Unknown]

NARRATIVE: CASE EVENT DATE: 20230715
